FAERS Safety Report 5241161-4 (Version None)
Quarter: 2007Q1

REPORT INFORMATION
  Report Type: 
  Country: None (occurrence: None)
  Receive Date: 20070220
  Receipt Date: 20070213
  Transmission Date: 20070707
  Serious: Yes (Other)
  Sender: FDA-Public Use
  Company Number: 2007UW01289

PATIENT
  Age: 34 Year
  Sex: Male
  Weight: 124.1 kg

DRUGS (4)
  1. SEROQUEL [Suspect]
     Indication: BIPOLAR DISORDER
     Route: 048
     Dates: start: 20050605, end: 20070205
  2. VOLTAREN [Concomitant]
  3. VICODIN [Concomitant]
  4. ZANTAC [Concomitant]
     Route: 048

REACTIONS (5)
  - DYSLIPIDAEMIA [None]
  - GLUCOSE TOLERANCE IMPAIRED [None]
  - SOMNOLENCE [None]
  - SURGERY [None]
  - WEIGHT INCREASED [None]
